FAERS Safety Report 19423739 (Version 1)
Quarter: 2021Q2

REPORT INFORMATION
  Report Type: Spontaneous
  Country: US (occurrence: US)
  Receive Date: 20210616
  Receipt Date: 20210616
  Transmission Date: 20210717
  Serious: No
  Sender: FDA-Public Use
  Company Number: US-TEVA-2021-US-1921953

PATIENT
  Age: 45 Year
  Sex: Male

DRUGS (1)
  1. AUSTEDO [Suspect]
     Active Substance: DEUTETRABENAZINE
     Dosage: 6 MILLIGRAM DAILY;
     Route: 048
     Dates: start: 20210326

REACTIONS (2)
  - Insurance issue [Unknown]
  - Trismus [Unknown]

NARRATIVE: CASE EVENT DATE: 20210524
